FAERS Safety Report 7935693-5 (Version None)
Quarter: 2011Q4

REPORT INFORMATION
  Report Type: 
  Country: None (occurrence: None)
  Receive Date: 20111123
  Receipt Date: 20111028
  Transmission Date: 20120403
  Serious: No
  Sender: FDA-Public Use
  Company Number: US-BAYER-2011-105408

PATIENT
  Sex: Female
  Weight: 102.4 kg

DRUGS (1)
  1. MIRENA [Suspect]
     Indication: MENORRHAGIA
     Dosage: 20 MCG/24HR, CONT
     Route: 015
     Dates: start: 20071201

REACTIONS (3)
  - WEIGHT INCREASED [None]
  - AMENORRHOEA [None]
  - METRORRHAGIA [None]
